FAERS Safety Report 12352902 (Version 3)
Quarter: 2016Q2

REPORT INFORMATION
  Report Type: Report from Study
  Country: NL (occurrence: NL)
  Receive Date: 20160510
  Receipt Date: 20160614
  Transmission Date: 20160815
  Serious: Yes (Hospitalization)
  Sender: FDA-Public Use
  Company Number: NL-ABBVIE-16P-114-1625544-00

PATIENT
  Sex: Male
  Weight: 65 kg

DRUGS (1)
  1. DUODOPA [Suspect]
     Active Substance: CARBIDOPA\LEVODOPA
     Indication: PARKINSON^S DISEASE
     Dosage: MORNING DOSE: 5.5, CONTINUOUS DOSE: 4.3, EXTRA DOSE: 3.0. NIGHT DOSE: 2.8.
     Route: 050
     Dates: start: 20160418

REACTIONS (2)
  - Neoplasm malignant [Unknown]
  - Barrett^s oesophagus [Not Recovered/Not Resolved]
